FAERS Safety Report 14805365 (Version 1)
Quarter: 2018Q2

REPORT INFORMATION
  Report Type: Spontaneous
  Country: US (occurrence: US)
  Receive Date: 20180425
  Receipt Date: 20180425
  Transmission Date: 20180711
  Serious: Yes (Hospitalization)
  Sender: FDA-Public Use
  Company Number: US-JNJFOC-20180429855

PATIENT
  Age: 55 Year
  Sex: Female

DRUGS (1)
  1. INVOKANA [Suspect]
     Active Substance: CANAGLIFLOZIN
     Indication: TYPE 2 DIABETES MELLITUS
     Route: 048
     Dates: start: 20130716, end: 20170711

REACTIONS (4)
  - Wound infection [Not Recovered/Not Resolved]
  - Osteomyelitis [Unknown]
  - Amputation [Unknown]
  - Neuropathic arthropathy [Unknown]

NARRATIVE: CASE EVENT DATE: 201603
